FAERS Safety Report 23179046 (Version 1)
Quarter: 2023Q4

REPORT INFORMATION
  Report Type: Spontaneous
  Country: FR (occurrence: FR)
  Receive Date: 20231113
  Receipt Date: 20231113
  Transmission Date: 20240109
  Serious: Yes (Hospitalization, Other)
  Sender: FDA-Public Use
  Company Number: FR-ROCHE-3449453

PATIENT
  Age: 18 Year
  Sex: Male

DRUGS (11)
  1. VINCRISTINE SULFATE [Suspect]
     Active Substance: VINCRISTINE SULFATE
     Indication: B-cell lymphoma
     Dosage: C1
     Route: 042
     Dates: start: 20230926
  2. VINCRISTINE SULFATE [Suspect]
     Active Substance: VINCRISTINE SULFATE
     Dosage: C2
     Route: 042
     Dates: start: 20231012
  3. RITUXIMAB [Suspect]
     Active Substance: RITUXIMAB
     Indication: B-cell lymphoma
     Dosage: C1
     Route: 042
     Dates: start: 20230926
  4. RITUXIMAB [Suspect]
     Active Substance: RITUXIMAB
     Dosage: C2
     Route: 042
     Dates: start: 20231012
  5. DOXORUBICIN HYDROCHLORIDE [Suspect]
     Active Substance: DOXORUBICIN HYDROCHLORIDE
     Indication: B-cell lymphoma
     Dosage: C1
     Route: 042
     Dates: start: 20230926
  6. DOXORUBICIN HYDROCHLORIDE [Suspect]
     Active Substance: DOXORUBICIN HYDROCHLORIDE
     Dosage: C2
     Route: 042
     Dates: start: 20231012
  7. CYCLOPHOSPHAMIDE [Suspect]
     Active Substance: CYCLOPHOSPHAMIDE
     Indication: B-cell lymphoma
     Dosage: C1
     Route: 042
     Dates: start: 20230926
  8. CYCLOPHOSPHAMIDE [Suspect]
     Active Substance: CYCLOPHOSPHAMIDE
     Dosage: C2
     Route: 042
     Dates: start: 20231012
  9. BACTRIM [Suspect]
     Active Substance: SULFAMETHOXAZOLE\TRIMETHOPRIM
     Indication: Prophylaxis
     Dosage: 1 DF (800/160 MG), ALTERNATE DAY
     Route: 048
     Dates: start: 20230926, end: 20231013
  10. PREDNISONE [Suspect]
     Active Substance: PREDNISONE
     Indication: B-cell lymphoma
     Dosage: C1
     Route: 048
     Dates: start: 20230926
  11. PREDNISONE [Suspect]
     Active Substance: PREDNISONE
     Dosage: C2
     Route: 048
     Dates: start: 20231012

REACTIONS (1)
  - Pancreatitis acute [Recovered/Resolved]

NARRATIVE: CASE EVENT DATE: 20231013
